FAERS Safety Report 18604587 (Version 1)
Quarter: 2020Q4

REPORT INFORMATION
  Report Type: Report from Study
  Country: US (occurrence: US)
  Receive Date: 20201211
  Receipt Date: 20201211
  Transmission Date: 20210114
  Serious: Yes (Hospitalization, Other)
  Sender: FDA-Public Use
  Company Number: US-B.I. PHARMACEUTICALS,INC./RIDGEFIELD-2020-BI-052151

PATIENT
  Age: 72 Year
  Sex: Male
  Weight: 118 kg

DRUGS (2)
  1. OFEV [Suspect]
     Active Substance: NINTEDANIB
     Indication: SCLERODERMA
     Dosage: OFEV DOSE 300MG DAILY
     Route: 048
     Dates: start: 20200818
  2. OFEV [Suspect]
     Active Substance: NINTEDANIB
     Indication: INTERSTITIAL LUNG DISEASE

REACTIONS (2)
  - Cardiac operation [Unknown]
  - Myocardial infarction [Unknown]
